FAERS Safety Report 5556257-7 (Version None)
Quarter: 2007Q4

REPORT INFORMATION
  Report Type: 
  Country: None (occurrence: None)
  Receive Date: 20071213
  Receipt Date: 20071002
  Transmission Date: 20080405
  Serious: No
  Sender: FDA-Public Use
  Company Number: US-AMGEN-KDL226448

PATIENT
  Sex: Female

DRUGS (2)
  1. ENBREL [Suspect]
     Indication: PSORIATIC ARTHROPATHY
     Route: 058
     Dates: start: 20050301
  2. METHOTREXATE [Concomitant]
     Route: 048
     Dates: start: 20050301

REACTIONS (2)
  - ANXIETY [None]
  - EMOTIONAL DISORDER [None]
